FAERS Safety Report 8863261 (Version 1)
Quarter: 2012Q4

REPORT INFORMATION
  Report Type: 
  Country: FR (occurrence: FR)
  Receive Date: 20121025
  Receipt Date: 20121025
  Transmission Date: 20130627
  Serious: No
  Sender: FDA-Public Use
  Company Number: FR-009507513-1210FRA005170

PATIENT
  Age: 78 Year
  Sex: Male

DRUGS (2)
  1. DIPROSONE [Suspect]
     Indication: INFLAMMATION
  2. DIPROSONE [Suspect]
     Indication: INFLAMMATION

REACTIONS (4)
  - Product label confusion [Unknown]
  - Drug dispensing error [Unknown]
  - Inflammation [Unknown]
  - Hypersensitivity [Unknown]
